FAERS Safety Report 18815662 (Version 1)
Quarter: 2021Q1

REPORT INFORMATION
  Report Type: Spontaneous
  Country: US (occurrence: US)
  Receive Date: 20210131
  Receipt Date: 20210131
  Transmission Date: 20210419
  Serious: Yes (Other)
  Sender: FDA-Public Use
  Company Number: None

PATIENT
  Age: 61 Year
  Sex: Male
  Weight: 85.5 kg

DRUGS (4)
  1. CREON [Suspect]
     Active Substance: PANCRELIPASE AMYLASE\PANCRELIPASE LIPASE\PANCRELIPASE PROTEASE
     Indication: PANCREATITIS
     Dosage: ?QUANTITY:100 CAPSULE(S);OTHER FREQUENCY:EVERY MEAL/SNACK;?
     Route: 048
     Dates: start: 20210115, end: 20210118
  2. MULTIVITAMINS [Concomitant]
     Active Substance: VITAMINS
  3. FENOFIBRATE. [Concomitant]
     Active Substance: FENOFIBRATE
  4. CELEBREX [Concomitant]
     Active Substance: CELECOXIB

REACTIONS (5)
  - Infrequent bowel movements [None]
  - Constipation [None]
  - Abdominal pain [None]
  - Decreased activity [None]
  - Insomnia [None]

NARRATIVE: CASE EVENT DATE: 20210120
